FAERS Safety Report 5085051-9 (Version None)
Quarter: 2006Q3

REPORT INFORMATION
  Report Type: 
  Country: None (occurrence: None)
  Receive Date: 20060822
  Receipt Date: 20060810
  Transmission Date: 20061208
  Serious: Yes (Other)
  Sender: FDA-Public Use
  Company Number: US-JNJFOC-20060803038

PATIENT
  Sex: Female
  Weight: 65.77 kg

DRUGS (2)
  1. REMICADE [Suspect]
     Indication: RHEUMATOID ARTHRITIS
     Route: 042
  2. HYDROCODONE BITARTRATE [Concomitant]
     Indication: PAIN

REACTIONS (2)
  - ORTHOPEDIC PROCEDURE [None]
  - SURGERY [None]
